FAERS Safety Report 7214798-0 (Version None)
Quarter: 2011Q1

REPORT INFORMATION
  Report Type: 
  Country: None (occurrence: None)
  Receive Date: 20110107
  Receipt Date: 20100301
  Transmission Date: 20110831
  Serious: No
  Sender: FDA-Public Use
  Company Number: A0847348A

PATIENT
  Age: 56 Year
  Sex: Male

DRUGS (16)
  1. MICRONASE [Concomitant]
  2. COQ10 [Concomitant]
  3. LASIX [Concomitant]
  4. HALCION [Concomitant]
  5. LOPRESSOR [Concomitant]
  6. FIBER CON [Concomitant]
  7. SENNA [Concomitant]
  8. VICODIN [Concomitant]
  9. PRILOSEC [Concomitant]
  10. DIAZIDE [Concomitant]
  11. TYLENOL W/ CODEINE NO. 3 [Concomitant]
  12. GLUCOPHAGE [Concomitant]
  13. LOVAZA [Suspect]
     Dosage: 2TAB TWICE PER DAY
     Route: 048
     Dates: start: 20100113
  14. NAPROSYN [Concomitant]
  15. NEURONTIN [Concomitant]
  16. FLAX SEED OIL [Concomitant]

REACTIONS (3)
  - ABNORMAL FAECES [None]
  - THERAPEUTIC RESPONSE UNEXPECTED [None]
  - URINE ODOUR ABNORMAL [None]
